FAERS Safety Report 13667333 (Version 1)
Quarter: 2017Q2

REPORT INFORMATION
  Report Type: Spontaneous
  Country: GB (occurrence: GB)
  Receive Date: 20170620
  Receipt Date: 20170620
  Transmission Date: 20170830
  Serious: Yes (Hospitalization)
  Sender: FDA-Public Use
  Company Number: GB-TORRENT-00015338

PATIENT
  Age: 80 Year
  Sex: Male
  Weight: 67 kg

DRUGS (10)
  1. DULOXETINE. [Suspect]
     Active Substance: DULOXETINE
  2. HYDROXOCOBALAMIN [Concomitant]
     Active Substance: HYDROXOCOBALAMIN
  3. SITAGLIPTIN [Concomitant]
     Active Substance: SITAGLIPTIN
  4. FLUOROMETHOLONE. [Concomitant]
     Active Substance: FLUOROMETHOLONE
  5. OMEPRAZOLE. [Concomitant]
     Active Substance: OMEPRAZOLE
  6. MOMETASONE/MOMETASONE FUROATE [Concomitant]
  7. COCODAMOL [Concomitant]
     Active Substance: ACETAMINOPHEN\CODEINE PHOSPHATE
  8. BRIMONIDINE TARTRATE. [Suspect]
     Active Substance: BRIMONIDINE TARTRATE
  9. ASPIRIN. [Concomitant]
     Active Substance: ASPIRIN
  10. METFORMIN [Concomitant]
     Active Substance: METFORMIN HYDROCHLORIDE

REACTIONS (2)
  - Blood pressure decreased [Not Recovered/Not Resolved]
  - Fall [Not Recovered/Not Resolved]
